FAERS Safety Report 12121560 (Version 1)
Quarter: 2016Q1

REPORT INFORMATION
  Report Type: Spontaneous
  Country: CH (occurrence: CH)
  Receive Date: 20160226
  Receipt Date: 20160226
  Transmission Date: 20160526
  Serious: Yes (Hospitalization)
  Sender: FDA-Public Use
  Company Number: CH-009507513-1602CHE011635

PATIENT
  Age: 60 Year
  Sex: Female

DRUGS (6)
  1. SERACTIL [Suspect]
     Active Substance: DEXIBUPROFEN
     Dates: start: 20151104, end: 20160104
  2. INEGY [Suspect]
     Active Substance: EZETIMIBE\SIMVASTATIN
     Dosage: ONCE DAILY SINCE THE END OF 2014 FOR SEVERAL MONTHS, DAILY DOSE UNKNOWN
     Dates: start: 2014
  3. BRIVUDINE [Suspect]
     Active Substance: BRIVUDINE
     Indication: HERPES ZOSTER
     Dosage: 125 MG, ONCE DAILY IN SEPTEMBER FOR PAIN AS NEEDED
     Dates: start: 201509
  4. IRFEN [Suspect]
     Active Substance: IBUPROFEN
     Indication: HERPES ZOSTER
     Dosage: 600 MG, BID IN SEPTEMBER FOR PAIN AS NEEDED.
     Dates: start: 201509
  5. VALDOXAN [Suspect]
     Active Substance: AGOMELATINE
     Dates: start: 20151104, end: 20160104
  6. LYRICA [Concomitant]
     Active Substance: PREGABALIN
     Indication: HERPES ZOSTER
     Dosage: 50 MG, ONCE DAILY IN SEPTEMBER AS NEEDED.
     Dates: start: 201509

REACTIONS (1)
  - Subacute hepatic failure [Unknown]

NARRATIVE: CASE EVENT DATE: 20160104
